FAERS Safety Report 20145574 (Version 1)
Quarter: 2021Q4

REPORT INFORMATION
  Report Type: Spontaneous
  Country: TH (occurrence: TH)
  Receive Date: 20211203
  Receipt Date: 20211203
  Transmission Date: 20220303
  Serious: Yes (Other)
  Sender: FDA-Public Use
  Company Number: TH-NOVARTISPH-NVSC2021TH269115

PATIENT
  Age: 69 Year
  Sex: Male

DRUGS (19)
  1. SACUBITRIL\VALSARTAN [Suspect]
     Active Substance: SACUBITRIL\VALSARTAN
     Indication: Cardiac failure
     Dosage: UNK(100)1/2IN TO 2 PC
     Route: 065
     Dates: start: 20200109
  2. SACUBITRIL\VALSARTAN [Suspect]
     Active Substance: SACUBITRIL\VALSARTAN
     Dosage: UNK(100)1 IN TO 2 PC
     Route: 065
     Dates: start: 20200116
  3. SACUBITRIL\VALSARTAN [Suspect]
     Active Substance: SACUBITRIL\VALSARTAN
     Dosage: UNK(100)2 IN TO 2 PC
     Route: 065
     Dates: start: 20200220
  4. SACUBITRIL\VALSARTAN [Suspect]
     Active Substance: SACUBITRIL\VALSARTAN
     Dosage: UNK(100)2 IN TO 2 PC
     Route: 065
     Dates: start: 20200604
  5. SACUBITRIL\VALSARTAN [Suspect]
     Active Substance: SACUBITRIL\VALSARTAN
     Dosage: UNK(100)2 IN TO 2 PC
     Route: 065
     Dates: start: 20200819
  6. FUROSEMIDE [Concomitant]
     Active Substance: FUROSEMIDE
     Indication: Product used for unknown indication
     Dosage: UNK(40)1/2 IN TO 1 PC
     Route: 065
     Dates: start: 20191216
  7. FUROSEMIDE [Concomitant]
     Active Substance: FUROSEMIDE
     Dosage: UNK(40)1 IN TO 1 PC
     Route: 065
     Dates: start: 20200109
  8. FUROSEMIDE [Concomitant]
     Active Substance: FUROSEMIDE
     Dosage: UNK(40) 1/2 IN TO 1 PC
     Route: 065
     Dates: start: 20200116
  9. FUROSEMIDE [Concomitant]
     Active Substance: FUROSEMIDE
     Dosage: UNK(40)1/2 IN TO 1PC
     Route: 065
     Dates: start: 20200220
  10. FUROSEMIDE [Concomitant]
     Active Substance: FUROSEMIDE
     Dosage: UNK(40)1/2 IN TO 1 PC
     Route: 065
     Dates: start: 20200604
  11. FUROSEMIDE [Concomitant]
     Active Substance: FUROSEMIDE
     Dosage: UNK(40)1/2 IN TO 1 PC
     Route: 065
     Dates: start: 20200819
  12. SPIRONOLACTONE [Concomitant]
     Active Substance: SPIRONOLACTONE
     Indication: Product used for unknown indication
     Dosage: UNK(25) 1/2 IN TO 1 PC
     Route: 065
     Dates: start: 20191216
  13. SPIRONOLACTONE [Concomitant]
     Active Substance: SPIRONOLACTONE
     Dosage: UNK(25)1/2 IN TO 1 PC
     Route: 065
     Dates: start: 20200109
  14. SPIRONOLACTONE [Concomitant]
     Active Substance: SPIRONOLACTONE
     Dosage: UNK(25)1/2 IN TO 1 PC
     Route: 065
     Dates: start: 20200116
  15. SPIRONOLACTONE [Concomitant]
     Active Substance: SPIRONOLACTONE
     Dosage: UNK(25)1/2 IN TO 1PC
     Route: 065
     Dates: start: 20200220
  16. SPIRONOLACTONE [Concomitant]
     Active Substance: SPIRONOLACTONE
     Dosage: UNK(40)1/2 IN TO 1 PC
     Route: 065
     Dates: start: 20200604
  17. SPIRONOLACTONE [Concomitant]
     Active Substance: SPIRONOLACTONE
     Dosage: UNK(40)1/2 IN TO 1 PC
     Route: 065
     Dates: start: 20200819
  18. DIGOXIN [Concomitant]
     Active Substance: DIGOXIN
     Indication: Product used for unknown indication
     Route: 065
  19. BISOPROLOL [Concomitant]
     Active Substance: BISOPROLOL
     Indication: Product used for unknown indication
     Route: 065

REACTIONS (6)
  - Cardiac failure chronic [Unknown]
  - Blood potassium decreased [Unknown]
  - Systolic hypertension [Unknown]
  - Venous pressure jugular increased [Unknown]
  - Blood creatinine increased [Unknown]
  - Wrong technique in product usage process [Unknown]
